FAERS Safety Report 17094812 (Version 2)
Quarter: 2020Q3

REPORT INFORMATION
  Report Type: Spontaneous
  Country: FR (occurrence: FR)
  Receive Date: 20191130
  Receipt Date: 20200820
  Transmission Date: 20201102
  Serious: Yes (Other)
  Sender: FDA-Public Use
  Company Number: FR-AUROBINDO-AUR-APL-2019-075948

PATIENT
  Age: 26 Year
  Sex: Female

DRUGS (2)
  1. B?TAM?THASONE [Suspect]
     Active Substance: BETAMETHASONE
     Indication: PREMATURE RUPTURE OF MEMBRANES
     Dosage: 12 MILLIGRAM, TWO TIMES A DAY
     Route: 065
  2. AMOXICILLIN. [Suspect]
     Active Substance: AMOXICILLIN
     Indication: PREMATURE RUPTURE OF MEMBRANES
     Dosage: 1 GRAM, 3 TIMES A DAY
     Route: 065

REACTIONS (3)
  - Exposure during pregnancy [Unknown]
  - Retroplacental haematoma [Unknown]
  - Premature delivery [Unknown]
